FAERS Safety Report 22238990 (Version 1)
Quarter: 2023Q2

REPORT INFORMATION
  Report Type: Spontaneous
  Country: US (occurrence: None)
  Receive Date: 20230420
  Receipt Date: 20230420
  Transmission Date: 20230722
  Serious: Yes (Other)
  Sender: FDA-Public Use
  Company Number: None

PATIENT
  Age: 67 Year
  Sex: Male
  Weight: 94.5 kg

DRUGS (24)
  1. LEVULAN KERASTICK [Suspect]
     Active Substance: AMINOLEVULINIC ACID HYDROCHLORIDE
     Indication: Actinic keratosis
     Route: 061
  2. DEVICE [Suspect]
     Active Substance: DEVICE
     Indication: Actinic keratosis
     Dosage: OTHER QUANTITY : 20 MINUTES;?FREQUENCY : TWICE A DAY;?OTHER ROUTE : LIGHT SHINED ONTO FACE;?
     Route: 050
  3. ANASTROZOLE [Concomitant]
     Active Substance: ANASTROZOLE
  4. CLARITIN [Concomitant]
     Active Substance: LORATADINE
  5. FLOMAX [Concomitant]
     Active Substance: TAMSULOSIN HYDROCHLORIDE
  6. NAPROXEN [Concomitant]
     Active Substance: NAPROXEN
  7. OMEPRAZOLE [Concomitant]
     Active Substance: OMEPRAZOLE
  8. RAMIPRIL [Concomitant]
     Active Substance: RAMIPRIL
  9. SUDAFED [Concomitant]
     Active Substance: PSEUDOEPHEDRINE HYDROCHLORIDE
  10. TADALAFIL [Concomitant]
     Active Substance: TADALAFIL
  11. TESTOSTERONE [Concomitant]
     Active Substance: TESTOSTERONE
  12. Interlaminar Steroid Injections (ILESI) [Concomitant]
  13. CALCIUM [Concomitant]
     Active Substance: CALCIUM
  14. PRASTERONE [Concomitant]
     Active Substance: PRASTERONE
  15. FISH OIL [Concomitant]
     Active Substance: FISH OIL
  16. GLUCOSAMINE [Concomitant]
     Active Substance: GLUCOSAMINE
  17. VITAMINS [Concomitant]
     Active Substance: VITAMINS
  18. DIETARY SUPPLEMENT [Concomitant]
     Active Substance: DIETARY SUPPLEMENT
  19. HERBALS\SPIRULINA [Concomitant]
     Active Substance: HERBALS\SPIRULINA
  20. Qnol Ubiquinol Mega CoQ10 [Concomitant]
  21. ASCORBIC ACID [Concomitant]
     Active Substance: ASCORBIC ACID
  22. Vitamins D [Concomitant]
  23. Vitamins E [Concomitant]
  24. ZINC [Concomitant]
     Active Substance: ZINC

REACTIONS (5)
  - Eye irritation [None]
  - Dry eye [None]
  - Eye irritation [None]
  - Ocular hyperaemia [None]
  - Feeling abnormal [None]

NARRATIVE: CASE EVENT DATE: 20230320
